FAERS Safety Report 8030349-5 (Version None)
Quarter: 2011Q4

REPORT INFORMATION
  Report Type: 
  Country: None (occurrence: None)
  Receive Date: 20111130
  Receipt Date: 20110822
  Transmission Date: 20120403
  Serious: Yes (Other)
  Sender: FDA-Public Use
  Company Number: US200812002402

PATIENT
  Age: 61 Year
  Sex: Male

DRUGS (8)
  1. METFORMIN HCL [Concomitant]
  2. BYETTA [Suspect]
     Dosage: 10 UG
     Dates: start: 20080201, end: 20080630
  3. FUROSEMIDE [Concomitant]
  4. EXENATIDE 10MCG PEN, DISPOSABLE DEVICE (EXENATIDE PEN (10MCG)) PEN,DIS [Concomitant]
  5. LISINOPRIL [Concomitant]
  6. PIOGLITAZONE [Concomitant]
  7. GLYBURIDE [Concomitant]
  8. GEMFIBROZIL [Concomitant]

REACTIONS (3)
  - PANCREATITIS [None]
  - GASTRITIS [None]
  - THYROID NEOPLASM [None]
